FAERS Safety Report 4869019-0 (Version None)
Quarter: 2005Q4

REPORT INFORMATION
  Report Type: 
  Country: None (occurrence: None)
  Receive Date: 20051223
  Receipt Date: 20051212
  Transmission Date: 20060501
  Serious: Yes (Other)
  Sender: FDA-Public Use
  Company Number: PHBS2005DE18505

PATIENT
  Age: 35 Year
  Sex: Male

DRUGS (3)
  1. VISUDYNE [Suspect]
     Indication: CHOROIDAL NEOVASCULARISATION
  2. VISUDYNE [Suspect]
     Indication: MYOPIA
  3. TRIAMCINOLONE ACETONIDE [Concomitant]

REACTIONS (7)
  - CATARACT SUBCAPSULAR [None]
  - CHOROIDAL NEOVASCULARISATION [None]
  - DISEASE PROGRESSION [None]
  - METAMORPHOPSIA [None]
  - POST PROCEDURAL COMPLICATION [None]
  - REPERFUSION INJURY [None]
  - RETINAL DEGENERATION [None]
